FAERS Safety Report 6668483-4 (Version None)
Quarter: 2010Q2

REPORT INFORMATION
  Report Type: 
  Country: None (occurrence: None)
  Receive Date: 20100406
  Receipt Date: 20100401
  Transmission Date: 20101027
  Serious: Yes (Death, Hospitalization, Other)
  Sender: FDA-Public Use
  Company Number: PHHY2010GB04867

PATIENT
  Sex: Male

DRUGS (9)
  1. CLOZARIL [Suspect]
     Indication: SCHIZOPHRENIA
     Dosage: 550 MG
     Route: 048
     Dates: start: 20070315
  2. ASPIRIN [Concomitant]
     Dosage: 75 MG
     Route: 048
  3. OMEPRAZOLE [Concomitant]
     Dosage: 20 MG
     Route: 048
  4. SENNA [Concomitant]
  5. SIMVASTATIN [Concomitant]
     Dosage: 20 MG
     Route: 048
  6. TIOTROPIUM [Concomitant]
     Dosage: 18 UG
  7. SERETIDE [Concomitant]
     Dosage: 25/50 2 PUFFS
  8. AMIODARONE HCL [Concomitant]
     Dosage: 200 MG
     Route: 048
  9. VALPRO [Concomitant]
     Dosage: 600 MG
     Route: 048

REACTIONS (12)
  - ANTIPSYCHOTIC DRUG LEVEL INCREASED [None]
  - CHRONIC OBSTRUCTIVE PULMONARY DISEASE [None]
  - CONSTIPATION [None]
  - COR PULMONALE [None]
  - GASTROINTESTINAL SOUNDS ABNORMAL [None]
  - GENERAL PHYSICAL HEALTH DETERIORATION [None]
  - INTESTINAL INFARCTION [None]
  - INTESTINAL OBSTRUCTION [None]
  - LOWER RESPIRATORY TRACT INFECTION [None]
  - PNEUMONIA [None]
  - PULMONARY OEDEMA [None]
  - VOLVULUS [None]
